FAERS Safety Report 25489613 (Version 1)
Quarter: 2025Q2

REPORT INFORMATION
  Report Type: Spontaneous
  Country: AU (occurrence: AU)
  Receive Date: 20250627
  Receipt Date: 20250627
  Transmission Date: 20250716
  Serious: No
  Sender: CSL BEHRING
  Company Number: AU-BEH-2025210631

PATIENT
  Age: 82 Year

DRUGS (1)
  1. KORSUVA [Suspect]
     Active Substance: DIFELIKEFALIN ACETATE
     Route: 065
     Dates: start: 202410

REACTIONS (2)
  - Coronavirus infection [Fatal]
  - Drug ineffective [Unknown]
